FAERS Safety Report 9093460 (Version 1)
Quarter: 2013Q1

REPORT INFORMATION
  Report Type: Spontaneous
  Country: US (occurrence: None)
  Receive Date: 20130213
  Receipt Date: 20130213
  Transmission Date: 20140127
  Serious: No
  Sender: FDA-Public Use
  Company Number: None

PATIENT
  Sex: Female

DRUGS (1)
  1. ACTHAR [Suspect]
     Indication: GLOMERULONEPHRITIS MINIMAL LESION
     Route: 058
     Dates: start: 20121206

REACTIONS (2)
  - Flushing [None]
  - Local swelling [None]
